FAERS Safety Report 21726320 (Version 2)
Quarter: 2023Q4

REPORT INFORMATION
  Report Type: Spontaneous
  Country: US (occurrence: US)
  Receive Date: 20221214
  Receipt Date: 20231219
  Transmission Date: 20240109
  Serious: No
  Sender: FDA-Public Use
  Company Number: US-ALVOGEN-2022088511

PATIENT
  Sex: Male

DRUGS (1)
  1. FENTANYL [Suspect]
     Active Substance: FENTANYL\FENTANYL CITRATE
     Indication: Pain
     Dosage: STRENGTH- 100 MCG/HR?EXPIRATION DATE: 31-MAR-2025.

REACTIONS (2)
  - Device malfunction [Unknown]
  - Device adhesion issue [Unknown]
